FAERS Safety Report 23044989 (Version 2)
Quarter: 2025Q2

REPORT INFORMATION
  Report Type: Spontaneous
  Country: US (occurrence: US)
  Receive Date: 20231009
  Receipt Date: 20250615
  Transmission Date: 20250716
  Serious: No
  Sender: SANOFI AVENTIS
  Company Number: US-SA-SAC20231004001543

PATIENT
  Age: 52 Year
  Sex: Male
  Weight: 102.27 kg

DRUGS (4)
  1. DUPIXENT [Suspect]
     Active Substance: DUPILUMAB
     Indication: Nasal polyps
     Dosage: 300 MG, QOW
     Route: 058
     Dates: end: 2023
  2. LISINOPRIL [Concomitant]
     Active Substance: LISINOPRIL
  3. XHANCE [Concomitant]
     Active Substance: FLUTICASONE PROPIONATE
  4. ATORVASTATIN CALCIUM [Concomitant]
     Active Substance: ATORVASTATIN CALCIUM

REACTIONS (7)
  - Dyspnoea [Not Recovered/Not Resolved]
  - Insomnia [Not Recovered/Not Resolved]
  - Epistaxis [Not Recovered/Not Resolved]
  - Tinnitus [Not Recovered/Not Resolved]
  - Anosmia [Not Recovered/Not Resolved]
  - Ageusia [Not Recovered/Not Resolved]
  - Nasal polypectomy [Unknown]

NARRATIVE: CASE EVENT DATE: 20230101
